FAERS Safety Report 4277915-0 (Version None)
Quarter: 2004Q1

REPORT INFORMATION
  Report Type: 
  Country: None (occurrence: None)
  Receive Date: 20040123
  Receipt Date: 20040105
  Transmission Date: 20041129
  Serious: Yes (Death, Hospitalization)
  Sender: FDA-Public Use
  Company Number: NL-GLAXOSMITHKLINE-B0319557A

PATIENT
  Age: 58 Year
  Sex: Male

DRUGS (9)
  1. AMOXICILLIN TRIHYDRATE [Suspect]
     Indication: DRUG USE FOR UNKNOWN INDICATION
     Dates: start: 20031006, end: 20031013
  2. CIPROFLOXACIN [Suspect]
     Indication: CYSTITIS
     Dosage: 1000MG PER DAY
     Route: 065
     Dates: start: 20031017, end: 20031022
  3. ACETAMINOPHEN [Concomitant]
     Dosage: 500MG AS REQUIRED
     Dates: start: 20030914
  4. THEOPHYLLINE [Concomitant]
     Dosage: 700MG PER DAY
  5. TIOTROPIUM BROMIDE [Concomitant]
     Dosage: 18MCG PER DAY
  6. FENOTEROL + IPRATROPIUM BROMIDE [Concomitant]
  7. FORMOTEROL [Concomitant]
     Dosage: 24MCG PER DAY
  8. TRAMADOL HCL [Concomitant]
     Dosage: 100MG AS REQUIRED
  9. PREDNISONE [Concomitant]

REACTIONS (7)
  - ALANINE AMINOTRANSFERASE INCREASED [None]
  - ASPARTATE AMINOTRANSFERASE INCREASED [None]
  - GAMMA-GLUTAMYLTRANSFERASE INCREASED [None]
  - HEPATIC FUNCTION ABNORMAL [None]
  - HEPATORENAL SYNDROME [None]
  - HYPOXIA [None]
  - MALAISE [None]
